FAERS Safety Report 11128089 (Version 1)
Quarter: 2015Q2

REPORT INFORMATION
  Report Type: Spontaneous
  Country: JP (occurrence: None)
  Receive Date: 20150519
  Receipt Date: 20150519
  Transmission Date: 20150821
  Serious: Yes (Other)
  Sender: FDA-Public Use
  Company Number: INT_00762_2015

PATIENT
  Age: 47 Year
  Sex: Female

DRUGS (5)
  1. RIFAMPICIN (RIFAMPICIN) [Suspect]
     Active Substance: RIFAMPIN
     Indication: PERITONEAL TUBERCULOSIS
     Dosage: DISCONTINUED ON DAYS 1,8 AND 15.
  2. ISONIAZID (ISONIAZID) [Suspect]
     Active Substance: ISONIAZID
     Indication: PERITONEAL TUBERCULOSIS
  3. CARBOPLATIN (CARBOPLATIN) [Suspect]
     Active Substance: CARBOPLATIN
     Indication: SEROUS CYSTADENOCARCINOMA OVARY
     Dosage: FOUR COURSES, WAS ADMINISTERED ON DAYS 1, 8 AND 15 EVERY 4 WEEKS AUC = 2), (DOSE REDUCED BY 20%), (THREE COURSES TRI-WEEKLY, AUC=6)
  4. ETHAMBUTOL [Suspect]
     Active Substance: ETHAMBUTOL HYDROCHLORIDE
     Indication: PERITONEAL TUBERCULOSIS
  5. PACLITAXEL (PACLITAXEL) (HQ SPECIALTY) [Suspect]
     Active Substance: PACLITAXEL
     Indication: SEROUS CYSTADENOCARCINOMA OVARY
     Dosage: 4 PER DAY, FOUR COURSES WAS ADMINISTERED ON DAYS 1,8 AND 15 EVERY 4 WEEKS; DFOSE REDUCED BY 20%, 175 MG/M2, THREE COURSES - TRI-WEEKLY.

REACTIONS (4)
  - Immunosuppression [None]
  - Alanine aminotransferase increased [None]
  - Aspartate aminotransferase increased [None]
  - Thrombocytopenia [None]
